FAERS Safety Report 9079897 (Version 1)
Quarter: 2013Q1

REPORT INFORMATION
  Report Type: Report from Study
  Country: US (occurrence: US)
  Receive Date: 20130130
  Receipt Date: 20130130
  Transmission Date: 20140127
  Serious: No
  Sender: FDA-Public Use
  Company Number: US-ABBOTT-12P-163-0962830-00

PATIENT
  Age: 37 Year
  Sex: Female

DRUGS (19)
  1. HUMIRA 40 MG/0.8 ML PEN [Suspect]
     Indication: RHEUMATOID ARTHRITIS
     Dosage: INITIAL DOSE
     Dates: start: 20120731
  2. METHOTREXATE [Concomitant]
     Indication: RHEUMATOID ARTHRITIS
     Dosage: 25MG/1ML WEEKLY
  3. COREG [Concomitant]
     Indication: ISCHAEMIC HEART DISEASE PROPHYLAXIS
     Dosage: 3.125 MG, 1 TWICE DAILY
  4. SIMVASTATIN [Concomitant]
     Indication: ISCHAEMIC HEART DISEASE PROPHYLAXIS
     Dosage: 40 MG DAILY, AT BEDTIME
  5. SALAGEN [Concomitant]
     Indication: SJOGREN^S SYNDROME
     Dosage: 5 MG, 1 TAB THREE TIMES A DAY
  6. CLARITIN OVER THE COUNTER [Concomitant]
     Indication: SEASONAL ALLERGY
     Dosage: DAILY
  7. MULTIVITAMIN [Concomitant]
     Indication: VITAMIN SUPPLEMENTATION
     Dosage: DAILY
  8. BABY ASPIRIN [Concomitant]
     Indication: ISCHAEMIC HEART DISEASE PROPHYLAXIS
     Dosage: 81 MG DAILY
  9. VITAMIN D [Concomitant]
     Indication: VITAMIN D DEFICIENCY
     Dosage: WEEKLY
  10. LUTEIN [Concomitant]
     Indication: SJOGREN^S SYNDROME
     Dosage: FOR BOTH EYES
  11. MELATONIN [Concomitant]
     Indication: MEDICAL DIET
     Dosage: 5 MG DAILY
  12. FOLIC ACID [Concomitant]
     Indication: PRODUCT USED FOR UNKNOWN INDICATION
     Dosage: 1 MG DAILY, IN COMBINATION WITH METHOTREXATE
  13. RANITIDINE [Concomitant]
     Indication: PEPTIC ULCER
  14. CELEXA [Concomitant]
     Indication: DEPRESSION
     Dosage: 40 MG DAILY, AT BEDTIME
  15. CALCIUM [Concomitant]
     Indication: MINERAL SUPPLEMENTATION
     Dosage: 600 MG, 1 TAB TWICE DAILY
  16. CALCIUM [Concomitant]
     Indication: OSTEOPOROSIS
  17. FISH OIL [Concomitant]
     Indication: MEDICAL DIET
  18. FISH OIL [Concomitant]
     Indication: ISCHAEMIC HEART DISEASE PROPHYLAXIS
  19. ALBUTEROL [Concomitant]
     Indication: ASTHMA

REACTIONS (2)
  - Injection site pain [Recovered/Resolved]
  - Injection site pain [Recovered/Resolved]
